FAERS Safety Report 4363648-9 (Version None)
Quarter: 2004Q2

REPORT INFORMATION
  Report Type: 
  Country: None (occurrence: None)
  Receive Date: 20040524
  Receipt Date: 20040512
  Transmission Date: 20050107
  Serious: Yes (Other)
  Sender: FDA-Public Use
  Company Number: PHBS2004IT06377

PATIENT

DRUGS (1)
  1. TOLEP [Suspect]
     Route: 048

REACTIONS (1)
  - HALLUCINATION, AUDITORY [None]
